FAERS Safety Report 4640134-X (Version None)
Quarter: 2005Q1

REPORT INFORMATION
  Report Type: 
  Country: None (occurrence: None)
  Receive Date: 20050328
  Receipt Date: 20050203
  Transmission Date: 20050727
  Serious: No
  Sender: FDA-Public Use
  Company Number: USA050289852

PATIENT
  Age: 10 Year
  Sex: Male
  Weight: 28 kg

DRUGS (2)
  1. STRATTERA [Suspect]
     Indication: ATTENTION DEFICIT/HYPERACTIVITY DISORDER
     Dosage: 60 MG/ 1 DAY
     Dates: start: 20040401
  2. RITALIN [Concomitant]

REACTIONS (6)
  - BLOOD PRESSURE INCREASED [None]
  - FATIGUE [None]
  - MONONUCLEOSIS SYNDROME [None]
  - PALLOR [None]
  - PRESCRIBED OVERDOSE [None]
  - WEIGHT DECREASED [None]
